FAERS Safety Report 8480682-8 (Version None)
Quarter: 2012Q3

REPORT INFORMATION
  Report Type: 
  Country: None (occurrence: None)
  Receive Date: 20120702
  Receipt Date: 20120626
  Transmission Date: 20120928
  Serious: No
  Sender: FDA-Public Use
  Company Number: US-PFIZER INC-2012154617

PATIENT
  Sex: Female

DRUGS (1)
  1. SUTENT [Suspect]
     Indication: ACUTE MYELOID LEUKAEMIA
     Dosage: 12.5 MG, 1X/DAY
     Dates: start: 20120329

REACTIONS (2)
  - ACUTE MYELOID LEUKAEMIA [None]
  - DISEASE RECURRENCE [None]
